FAERS Safety Report 10437227 (Version 2)
Quarter: 2014Q4

REPORT INFORMATION
  Report Type: Spontaneous
  Country: JP (occurrence: JP)
  Receive Date: 20140908
  Receipt Date: 20141002
  Transmission Date: 20150528
  Serious: Yes (Other)
  Sender: FDA-Public Use
  Company Number: JP-ASTRAZENECA-2014SE66957

PATIENT
  Age: 42 Year
  Sex: Female

DRUGS (3)
  1. SEROQUEL [Suspect]
     Active Substance: QUETIAPINE FUMARATE
     Indication: INSOMNIA
     Route: 048
  2. HERBAL NOS [Concomitant]
     Active Substance: HERBALS
  3. HYPNOTIC [Concomitant]

REACTIONS (3)
  - Pleural effusion [Unknown]
  - Tuberculous pleurisy [Unknown]
  - Off label use [Unknown]
